FAERS Safety Report 9117250 (Version 4)
Quarter: 2013Q3

REPORT INFORMATION
  Report Type: Report from Study
  Country: CA (occurrence: CA)
  Receive Date: 20130225
  Receipt Date: 20130826
  Transmission Date: 20140515
  Serious: Yes (Hospitalization, Other)
  Sender: FDA-Public Use
  Company Number: CA-JNJFOC-20121012691

PATIENT
  Age: 33 Year
  Sex: Female
  Weight: 84 kg

DRUGS (17)
  1. REMICADE [Suspect]
     Indication: CROHN^S DISEASE
     Dosage: THERAPY DURATION: 2 HRS
     Route: 042
     Dates: start: 20120909
  2. REMICADE [Suspect]
     Indication: CROHN^S DISEASE
     Route: 042
     Dates: start: 20120914
  3. REMICADE [Suspect]
     Indication: CROHN^S DISEASE
     Route: 042
     Dates: start: 201210, end: 201301
  4. REMICADE [Suspect]
     Indication: CROHN^S DISEASE
     Route: 042
     Dates: start: 2012
  5. PREDNISONE [Concomitant]
     Route: 042
  6. TECTA [Concomitant]
     Route: 065
  7. SUCRALFATE [Concomitant]
     Route: 065
  8. EFFEXOR [Concomitant]
     Route: 065
  9. LYRICA [Concomitant]
     Route: 065
  10. ELAVIL [Concomitant]
     Dosage: 4 H5
     Route: 065
  11. CALCIUM 500 MG + VITAMIN D [Concomitant]
     Dosage: VITAMIN D 125
     Route: 065
  12. OMEGA 3 [Concomitant]
     Route: 065
  13. GINGER ROOT [Concomitant]
     Route: 065
  14. VITAMIN  D [Concomitant]
     Route: 065
  15. VITAMIN D [Concomitant]
     Route: 065
  16. MULTIVITAMINES [Concomitant]
     Route: 065
  17. PALAFER [Concomitant]
     Route: 065

REACTIONS (9)
  - Intestinal operation [Unknown]
  - Limb injury [Unknown]
  - Post procedural complication [Unknown]
  - Abdominal pain [Unknown]
  - Crohn^s disease [Unknown]
  - Drug ineffective [Unknown]
  - Pneumonia [Unknown]
  - Abscess [Unknown]
  - Abdominal abscess [Unknown]
